FAERS Safety Report 6070546-1 (Version None)
Quarter: 2009Q1

REPORT INFORMATION
  Report Type: 
  Country: None (occurrence: None)
  Receive Date: 20090209
  Receipt Date: 20090130
  Transmission Date: 20090719
  Serious: Yes (Hospitalization, Other)
  Sender: FDA-Public Use
  Company Number: BE-ABBOTT-08P-013-0490105-00

PATIENT
  Sex: Male

DRUGS (5)
  1. HUMIRA [Suspect]
     Indication: RHEUMATOID ARTHRITIS
     Dates: start: 20061101
  2. MOBIC [Concomitant]
     Indication: DRUG USE FOR UNKNOWN INDICATION
  3. ASPEGIC 325 [Concomitant]
     Indication: DRUG USE FOR UNKNOWN INDICATION
  4. HYPERLIPEN [Concomitant]
     Indication: DRUG USE FOR UNKNOWN INDICATION
  5. TICLID [Concomitant]
     Indication: DRUG USE FOR UNKNOWN INDICATION

REACTIONS (1)
  - INGUINAL HERNIA [None]
